FAERS Safety Report 7095154-5 (Version None)
Quarter: 2010Q4

REPORT INFORMATION
  Report Type: 
  Country: None (occurrence: None)
  Receive Date: 20101109
  Receipt Date: 20101109
  Transmission Date: 20110411
  Serious: Yes (Other)
  Sender: FDA-Public Use
  Company Number: None

PATIENT
  Age: 5 Month
  Sex: Female
  Weight: 7.2576 kg

DRUGS (1)
  1. HYLAND'S TEETHING TABLETS 145 TABS HYLAND'S [Suspect]
     Indication: TEETHING
     Dosage: 2-3 TABS ONCE OR TWICE A DA PO  10 TO 15 SECONDS LONG
     Route: 048
     Dates: start: 20101023, end: 20101027

REACTIONS (2)
  - CONVULSION [None]
  - PRODUCT QUALITY ISSUE [None]
